FAERS Safety Report 23642408 (Version 2)
Quarter: 2024Q1

REPORT INFORMATION
  Report Type: Spontaneous
  Country: US (occurrence: US)
  Receive Date: 20240318
  Receipt Date: 20240331
  Transmission Date: 20240409
  Serious: No
  Sender: FDA-Public Use
  Company Number: US-AMGEN-USASP2024052732

PATIENT
  Age: 55 Year
  Sex: Male
  Weight: 104.78 kg

DRUGS (1)
  1. NEULASTA [Suspect]
     Active Substance: PEGFILGRASTIM
     Indication: Hodgkin^s disease
     Dosage: UNK
     Route: 065

REACTIONS (1)
  - Unintentional medical device removal [Unknown]

NARRATIVE: CASE EVENT DATE: 20240306
